FAERS Safety Report 23145773 (Version 2)
Quarter: 2023Q4

REPORT INFORMATION
  Report Type: Report from Study
  Country: CA (occurrence: CA)
  Receive Date: 20231103
  Receipt Date: 20231213
  Transmission Date: 20240109
  Serious: Yes (Death, Other)
  Sender: FDA-Public Use
  Company Number: CA-HLS-202302478

PATIENT
  Sex: Male

DRUGS (1)
  1. CLOZARIL [Suspect]
     Active Substance: CLOZAPINE
     Indication: Product used for unknown indication
     Dosage: 100MG QAM+225MG QHS
     Route: 048
     Dates: start: 20200420

REACTIONS (1)
  - Pneumonia aspiration [Fatal]
